FAERS Safety Report 19927960 (Version 2)
Quarter: 2021Q4

REPORT INFORMATION
  Report Type: Spontaneous
  Country: US (occurrence: US)
  Receive Date: 20211007
  Receipt Date: 20211027
  Transmission Date: 20220303
  Serious: Yes (Hospitalization)
  Sender: FDA-Public Use
  Company Number: US-LUPIN PHARMACEUTICALS INC.-2021-18882

PATIENT
  Age: 10 Year
  Sex: Female

DRUGS (3)
  1. GABAPENTIN [Suspect]
     Active Substance: GABAPENTIN
     Indication: Erythromelalgia
     Dosage: UNK
     Route: 048
  2. AMITRIPTYLINE [Suspect]
     Active Substance: AMITRIPTYLINE
     Indication: Erythromelalgia
     Dosage: UNK
     Route: 061
  3. KETAMINE [Concomitant]
     Active Substance: KETAMINE
     Indication: Erythromelalgia
     Dosage: UNK
     Route: 061

REACTIONS (1)
  - Drug ineffective [Unknown]
